FAERS Safety Report 7406124-9 (Version None)
Quarter: 2011Q2

REPORT INFORMATION
  Report Type: 
  Country: None (occurrence: None)
  Receive Date: 20110411
  Receipt Date: 20110408
  Transmission Date: 20111010
  Serious: Yes (Hospitalization, Other)
  Sender: FDA-Public Use
  Company Number: FR-PFIZER INC-2009163280

PATIENT
  Age: 67 Year
  Sex: Female
  Weight: 109 kg

DRUGS (14)
  1. PRAVASTATIN SODIUM [Suspect]
     Dosage: 40 MG, 1X/DAY
     Route: 048
     Dates: end: 20080806
  2. ROCEPHIN [Suspect]
     Dosage: 2 G, 1X/DAY
     Route: 042
     Dates: start: 20080716, end: 20080805
  3. FLAGYL [Concomitant]
     Dosage: UNK
     Dates: start: 20080716, end: 20080805
  4. TENORMIN [Suspect]
     Dosage: UNK
     Route: 048
     Dates: end: 20080806
  5. OFLOCET [Suspect]
     Dosage: 200 MG, 1X/DAY
     Route: 048
     Dates: start: 20080722, end: 20080805
  6. CELLCEPT [Suspect]
     Dosage: 500 MG, 2X/DAY
     Route: 048
     Dates: end: 20080808
  7. ARANESP [Concomitant]
     Dosage: 30 MG, WEEKLY
     Dates: end: 20080806
  8. SPECIAFOLDINE [Concomitant]
     Dosage: 2 DF, 1X/DAY
     Route: 048
     Dates: end: 20080806
  9. CALCIPARINE [Concomitant]
     Dosage: 0.3 ML, 2X/DAY
  10. LASIX [Concomitant]
     Dosage: UNK
     Dates: end: 20080101
  11. AMLODIPINE BESYLATE [Suspect]
     Dosage: 5 MG, 1X/DAY
     Route: 048
     Dates: end: 20080806
  12. NEORAL [Concomitant]
     Dosage: 40 MG, 2X/DAY
     Route: 048
  13. CORDARONE [Suspect]
     Dosage: 100 MG, 1X/DAY
     Route: 048
     Dates: end: 20080806
  14. PREVISCAN [Concomitant]
     Dosage: UNK
     Dates: end: 20080101

REACTIONS (4)
  - MUSCULAR WEAKNESS [None]
  - QUADRIPARESIS [None]
  - RENAL FAILURE [None]
  - RHABDOMYOLYSIS [None]
